FAERS Safety Report 5612698-0 (Version None)
Quarter: 2008Q1

REPORT INFORMATION
  Report Type: 
  Country: None (occurrence: None)
  Receive Date: 20080204
  Receipt Date: 20070413
  Transmission Date: 20080703
  Serious: Yes (Hospitalization)
  Sender: FDA-Public Use
  Company Number: FR-ASTRAZENECA-2007CG00421

PATIENT
  Age: 31457 Day
  Sex: Male

DRUGS (1)
  1. XYLOCAINE [Suspect]
     Indication: LOCAL ANAESTHESIA
     Route: 066
     Dates: start: 20070115, end: 20070115

REACTIONS (2)
  - URETHRAL HAEMORRHAGE [None]
  - URETHRAL PAIN [None]
